FAERS Safety Report 8371580-9 (Version None)
Quarter: 2012Q2

REPORT INFORMATION
  Report Type: 
  Country: None (occurrence: None)
  Receive Date: 20120518
  Receipt Date: 20120509
  Transmission Date: 20120825
  Serious: Yes (Death)
  Sender: FDA-Public Use
  Company Number: US-CELGENEUS-163-21880-12033471

PATIENT
  Sex: Female

DRUGS (2)
  1. REVLIMID [Suspect]
     Dosage: 5 MILLIGRAM
     Route: 048
     Dates: start: 20111201
  2. REVLIMID [Suspect]
     Indication: MULTIPLE MYELOMA
     Dosage: 25 MILLIGRAM
     Route: 048
     Dates: start: 20111101

REACTIONS (10)
  - RENAL FAILURE ACUTE [None]
  - DIABETES MELLITUS [None]
  - TRANSAMINASES INCREASED [None]
  - ADRENAL INSUFFICIENCY [None]
  - HYPONATRAEMIA [None]
  - HYPERKALAEMIA [None]
  - LACTIC ACIDOSIS [None]
  - HEPARIN-INDUCED THROMBOCYTOPENIA [None]
  - SEPTIC SHOCK [None]
  - INTESTINAL ISCHAEMIA [None]
